FAERS Safety Report 14927495 (Version 2)
Quarter: 2018Q4

REPORT INFORMATION
  Report Type: Spontaneous
  Country: FR (occurrence: FR)
  Receive Date: 20180523
  Receipt Date: 20181024
  Transmission Date: 20190204
  Serious: Yes (Other)
  Sender: FDA-Public Use
  Company Number: FR-MERCK KGAA-2048288

PATIENT
  Age: 65 Year
  Sex: Female

DRUGS (3)
  1. NOVOTHYROX [Suspect]
     Active Substance: LEVOTHYROXINE SODIUM
     Dates: start: 20170510
  2. NOVOTHYROX [Suspect]
     Active Substance: LEVOTHYROXINE SODIUM
     Dates: start: 20170710
  3. EUTHYROX [Suspect]
     Active Substance: LEVOTHYROXINE SODIUM
     Dates: start: 2017, end: 20180115

REACTIONS (21)
  - Aggression [None]
  - Blood cholesterol increased [Not Recovered/Not Resolved]
  - Muscle spasms [None]
  - Hyperthyroidism [Recovered/Resolved]
  - Personal relationship issue [None]
  - Anxiety [None]
  - Hypothyroidism [Recovered/Resolved]
  - Alopecia [None]
  - Mood swings [None]
  - Fatigue [None]
  - Social problem [None]
  - Crying [None]
  - Palpitations [Not Recovered/Not Resolved]
  - Weight decreased [None]
  - Headache [None]
  - Myalgia [None]
  - Malaise [None]
  - Loss of personal independence in daily activities [None]
  - Agitation [None]
  - Insomnia [None]
  - Disturbance in attention [None]

NARRATIVE: CASE EVENT DATE: 20170510
